FAERS Safety Report 23170415 (Version 2)
Quarter: 2023Q4

REPORT INFORMATION
  Report Type: Spontaneous
  Country: US (occurrence: US)
  Receive Date: 20231110
  Receipt Date: 20231117
  Transmission Date: 20240110
  Serious: No
  Sender: FDA-Public Use
  Company Number: US-009507513-2310USA012754

PATIENT
  Sex: Male

DRUGS (1)
  1. STEGLUJAN [Suspect]
     Active Substance: ERTUGLIFLOZIN PIDOLATE\SITAGLIPTIN PHOSPHATE
     Indication: Type 2 diabetes mellitus
     Dosage: 15MG/100MG TABLETS
     Route: 048
     Dates: start: 2023, end: 20230925

REACTIONS (4)
  - Hepatic pain [Not Recovered/Not Resolved]
  - Liver disorder [Not Recovered/Not Resolved]
  - Hepatomegaly [Unknown]
  - Weight decreased [Unknown]

NARRATIVE: CASE EVENT DATE: 20230101
